FAERS Safety Report 7144636-6 (Version None)
Quarter: 2010Q4

REPORT INFORMATION
  Report Type: 
  Country: None (occurrence: None)
  Receive Date: 20101119
  Receipt Date: 20091224
  Transmission Date: 20110411
  Serious: Yes (Hospitalization)
  Sender: FDA-Public Use
  Company Number: UTC-000769

PATIENT
  Age: 73 Year
  Sex: Female
  Weight: 79 kg

DRUGS (13)
  1. TYVASO [Suspect]
     Indication: PULMONARY ARTERIAL HYPERTENSION
     Dosage: SEE IMAGE
     Route: 055
     Dates: start: 20091127, end: 20091204
  2. TYVASO [Suspect]
     Indication: PULMONARY ARTERIAL HYPERTENSION
     Dosage: SEE IMAGE
     Route: 055
     Dates: start: 20091117
  3. TYVASO [Suspect]
     Indication: PULMONARY ARTERIAL HYPERTENSION
     Dosage: SEE IMAGE
     Route: 055
     Dates: start: 20091204
  4. REMODULIN [Suspect]
     Indication: PULMONARY ARTERIAL HYPERTENSION
     Dosage: 61.2 UG/KG (0.0425 UG/KG, 1 IN 1 MIN), SUBCUTANEOUS
     Route: 058
     Dates: start: 20080905
  5. REVATIO [Concomitant]
  6. TRACLEER [Concomitant]
  7. SINGULAIR [Concomitant]
  8. COUMADIN [Concomitant]
  9. LIPITOR [Concomitant]
  10. SPIRONOLACTONE + HCTZ (ALDACTAZIDE A) [Concomitant]
  11. KLOR-CON [Concomitant]
  12. CARDIZEM CD [Concomitant]
  13. OXYGEN (OXYGEN) [Concomitant]

REACTIONS (3)
  - DIZZINESS [None]
  - HYPOTENSION [None]
  - SYNCOPE [None]
